FAERS Safety Report 7405568-9 (Version None)
Quarter: 2011Q2

REPORT INFORMATION
  Report Type: 
  Country: None (occurrence: None)
  Receive Date: 20110411
  Receipt Date: 20110331
  Transmission Date: 20111010
  Serious: Yes (Other)
  Sender: FDA-Public Use
  Company Number: US-AMGEN-USASP2011017494

PATIENT
  Age: 59 Year
  Sex: Female

DRUGS (1)
  1. ENBREL [Suspect]
     Indication: RHEUMATOID ARTHRITIS
     Dosage: 50 MG, QWK
     Dates: start: 20110201, end: 20110317

REACTIONS (7)
  - VISUAL ACUITY REDUCED [None]
  - ASTHENIA [None]
  - ARTHRALGIA [None]
  - DIZZINESS [None]
  - BACK PAIN [None]
  - NAUSEA [None]
  - DYSSTASIA [None]
